FAERS Safety Report 5383864-7 (Version None)
Quarter: 2007Q3

REPORT INFORMATION
  Report Type: 
  Country: None (occurrence: None)
  Receive Date: 20070705
  Receipt Date: 20070628
  Transmission Date: 20080115
  Serious: Yes (Life-Threatening, Hospitalization)
  Sender: FDA-Public Use
  Company Number: 2007-PI238

PATIENT
  Sex: Female

DRUGS (1)
  1. CHLORAPREP WITH TINT [Suspect]
     Indication: PREOPERATIVE CARE
     Dosage: 10.5ML, ONCE, TOPICAL
     Route: 061
     Dates: start: 20070628

REACTIONS (4)
  - ANAPHYLACTIC REACTION [None]
  - EYE SWELLING [None]
  - LIP SWELLING [None]
  - SWOLLEN TONGUE [None]
